FAERS Safety Report 7447501-X (Version None)
Quarter: 2011Q2

REPORT INFORMATION
  Report Type: 
  Country: None (occurrence: None)
  Receive Date: 20110420
  Receipt Date: 20110325
  Transmission Date: 20111010
  Serious: Yes (Hospitalization)
  Sender: FDA-Public Use
  Company Number: HRA-CDB20110027

PATIENT
  Age: 17 Year
  Sex: Female

DRUGS (2)
  1. ELLAONE 30 MG TABLETS (ELLAONE) (ULIPRISTAL ACETATE) [Suspect]
     Indication: POST COITAL CONTRACEPTION
     Dosage: 30 MG (30 MG, 1 IN 1 D), ORAL
     Route: 048
     Dates: start: 20110322, end: 20110322
  2. YASMIN [Suspect]
     Indication: CONTRACEPTION

REACTIONS (4)
  - HEADACHE [None]
  - SYNCOPE [None]
  - DRUG DOSE OMISSION [None]
  - VOMITING [None]
